FAERS Safety Report 19877355 (Version 1)
Quarter: 2021Q3

REPORT INFORMATION
  Report Type: Spontaneous
  Country: US (occurrence: US)
  Receive Date: 20210924
  Receipt Date: 20210924
  Transmission Date: 20211014
  Serious: No
  Sender: FDA-Public Use
  Company Number: US-ALLERGAN-2114298US

PATIENT
  Age: 64 Year
  Sex: Female

DRUGS (1)
  1. SUCRALFATE TABLET [Suspect]
     Active Substance: SUCRALFATE
     Indication: GASTRIC ULCER
     Dosage: 2 DF, QD
     Route: 048
     Dates: start: 202102, end: 202103

REACTIONS (2)
  - Drug ineffective [Unknown]
  - Product quality issue [Unknown]
